FAERS Safety Report 4828292-5 (Version None)
Quarter: 2005Q4

REPORT INFORMATION
  Report Type: 
  Country: None (occurrence: None)
  Receive Date: 20051114
  Receipt Date: 20051114
  Transmission Date: 20060501
  Serious: No
  Sender: FDA-Public Use
  Company Number: None

PATIENT
  Age: 63 Year
  Sex: Female
  Weight: 22.6799 kg

DRUGS (2)
  1. AVASTIN [Suspect]
     Indication: NON-SMALL CELL LUNG CANCER
     Dosage: 066MG
     Dates: start: 20051019
  2. ERLOTINIB 150MG/DAY [Suspect]
     Indication: NON-SMALL CELL LUNG CANCER
     Dosage: 150MG/DAY
     Dates: start: 20051108

REACTIONS (3)
  - BACK PAIN [None]
  - COMPRESSION FRACTURE [None]
  - DEHYDRATION [None]
